FAERS Safety Report 14068977 (Version 1)
Quarter: 2017Q4

REPORT INFORMATION
  Report Type: Other
  Country: PT (occurrence: PT)
  Receive Date: 20171010
  Receipt Date: 20171010
  Transmission Date: 20180321
  Serious: Yes (Other)
  Sender: FDA-Public Use
  Company Number: PT-CELLTRION INC.-2017PT013481

PATIENT

DRUGS (9)
  1. VIARTRIL-S                         /00362101/ [Concomitant]
  2. SALOFALK                           /00000301/ [Concomitant]
     Active Substance: MESALAMINE
  3. VALSARTAN. [Concomitant]
     Active Substance: VALSARTAN
  4. VISINE                             /00256502/ [Concomitant]
  5. INFLECTRA [Suspect]
     Active Substance: INFLIXIMAB-DYYB
     Indication: CROHN^S DISEASE
     Dosage: 200 MG, 8/8 WEEKS
     Route: 042
     Dates: start: 20161026, end: 20170919
  6. COSOPT [Concomitant]
     Active Substance: DORZOLAMIDE HYDROCHLORIDE\TIMOLOL MALEATE
  7. SUCRALFATE. [Concomitant]
     Active Substance: SUCRALFATE
  8. CATALIP [Concomitant]
     Active Substance: FENOFIBRATE
  9. OSSIN                              /00168201/ [Concomitant]

REACTIONS (6)
  - Chest discomfort [Recovered/Resolved]
  - Rash [Recovered/Resolved]
  - Dyspnoea [Recovered/Resolved]
  - Rash papular [Recovered/Resolved]
  - Rash pruritic [Recovered/Resolved]
  - Feeling hot [Recovered/Resolved]

NARRATIVE: CASE EVENT DATE: 20170919
